FAERS Safety Report 14453072 (Version 1)
Quarter: 2018Q1

REPORT INFORMATION
  Report Type: Report from Study
  Country: US (occurrence: US)
  Receive Date: 20180129
  Receipt Date: 20180129
  Transmission Date: 20180509
  Serious: Yes (Death, Hospitalization)
  Sender: FDA-Public Use
  Company Number: US-JNJFOC-20171111524

PATIENT
  Age: 91 Year
  Sex: Female

DRUGS (10)
  1. COLACE [Concomitant]
     Active Substance: DOCUSATE SODIUM
  2. VALSARTAN. [Concomitant]
     Active Substance: VALSARTAN
  3. ASPIRIN. [Concomitant]
     Active Substance: ASPIRIN
  4. VITAMIN B [Concomitant]
     Active Substance: VITAMIN B
  5. SYNTHROID [Concomitant]
     Active Substance: LEVOTHYROXINE SODIUM
  6. ZITHROMAX [Concomitant]
     Active Substance: AZITHROMYCIN DIHYDRATE
  7. IMBRUVICA [Suspect]
     Active Substance: IBRUTINIB
     Indication: MANTLE CELL LYMPHOMA
     Route: 048
     Dates: start: 20171031
  8. NORVASC [Concomitant]
     Active Substance: AMLODIPINE BESYLATE
  9. NORCO [Concomitant]
     Active Substance: ACETAMINOPHEN\HYDROCODONE BITARTRATE
  10. CYANOCOBALAMIN. [Concomitant]
     Active Substance: CYANOCOBALAMIN

REACTIONS (18)
  - Flatulence [Unknown]
  - Parosmia [Unknown]
  - Pain in extremity [Unknown]
  - Death [Fatal]
  - Dry mouth [Not Recovered/Not Resolved]
  - Peripheral swelling [Recovering/Resolving]
  - Vomiting [Unknown]
  - Musculoskeletal pain [Unknown]
  - Intra-abdominal pressure increased [Unknown]
  - Dyspnoea [Unknown]
  - Dysgeusia [Unknown]
  - Blood pressure increased [Unknown]
  - Asthenia [Unknown]
  - Nausea [Recovered/Resolved]
  - Back pain [Unknown]
  - Urinary tract infection [Unknown]
  - Chest discomfort [Unknown]
  - Chest pain [Unknown]

NARRATIVE: CASE EVENT DATE: 2017
